FAERS Safety Report 5942053-5 (Version None)
Quarter: 2008Q4

REPORT INFORMATION
  Report Type: 
  Country: None (occurrence: None)
  Receive Date: 20081105
  Receipt Date: 20081030
  Transmission Date: 20090506
  Serious: No
  Sender: FDA-Public Use
  Company Number: A0748220A

PATIENT
  Age: 79 Year
  Sex: Female

DRUGS (1)
  1. WELLBUTRIN [Suspect]
     Indication: MAJOR DEPRESSION
     Dosage: .5TAB PER DAY
     Dates: start: 20080821, end: 20080903

REACTIONS (1)
  - DERMATITIS ALLERGIC [None]
